FAERS Safety Report 4320321-0 (Version None)
Quarter: 2004Q1

REPORT INFORMATION
  Report Type: 
  Country: None (occurrence: None)
  Receive Date: 20040317
  Receipt Date: 20040305
  Transmission Date: 20041129
  Serious: Yes (Life-Threatening, Hospitalization)
  Sender: FDA-Public Use
  Company Number: PERI00204000635

PATIENT
  Age: 76 Year
  Sex: Female
  Weight: 55 kg

DRUGS (5)
  1. COVERSYL (PERINDOPRIL) [Suspect]
     Indication: ESSENTIAL HYPERTENSION
     Dosage: 4 MG QD PO
     Route: 048
     Dates: end: 20030716
  2. COVERSYL PLUS (PERINDOPRIL) [Suspect]
     Indication: ESSENTIAL HYPERTENSION
     Dosage: DAILY PO
     Route: 048
     Dates: start: 20030716
  3. PLAVIX [Suspect]
     Indication: ILL-DEFINED DISORDER
     Dosage: 75 MG DAILY PO
     Route: 048
     Dates: start: 20030716
  4. CIPRAMIL (CITALOPRAM HYDROBROMIDE) [Suspect]
     Indication: DEPRESSION
     Dosage: 20 MG DAILY PO
     Route: 048
     Dates: start: 20030709
  5. ASPIRIN [Suspect]
     Indication: ILL-DEFINED DISORDER
     Dosage: 150 MG DAILY PO
     Route: 048
     Dates: end: 20030716

REACTIONS (1)
  - GASTROINTESTINAL HAEMORRHAGE [None]
